FAERS Safety Report 18124883 (Version 2)
Quarter: 2020Q3

REPORT INFORMATION
  Report Type: Spontaneous
  Country: US (occurrence: US)
  Receive Date: 20200807
  Receipt Date: 20200825
  Transmission Date: 20201103
  Serious: Yes (Hospitalization)
  Sender: FDA-Public Use
  Company Number: US-ACTELION-A-NJ2020-207946

PATIENT
  Sex: Female

DRUGS (5)
  1. POLY?VI?SOL [ASCORBIC ACID;COLECALCIFEROL;NICOTINAMIDE;RETINOL;RIBOFLA [Concomitant]
     Dosage: 1 ML
     Route: 048
  2. TRACLEER [Suspect]
     Active Substance: BOSENTAN
     Indication: PULMONARY HYPERTENSION
     Dosage: UNK
     Route: 048
  3. ACETAMINOPHEN. [Concomitant]
     Active Substance: ACETAMINOPHEN
     Dosage: 15 MG/KG, QBHPRN
     Route: 048
     Dates: start: 20200601
  4. TRACLEER [Suspect]
     Active Substance: BOSENTAN
     Dosage: 16 MG, Q12HRS
     Route: 048
     Dates: start: 20200611
  5. RIOCIGUAT. [Concomitant]
     Active Substance: RIOCIGUAT
     Dosage: 1.5 MG
     Dates: start: 20200122

REACTIONS (1)
  - Lung transplant [Recovering/Resolving]
